FAERS Safety Report 6028749-8 (Version None)
Quarter: 2009Q1

REPORT INFORMATION
  Report Type: 
  Country: None (occurrence: None)
  Receive Date: 20090106
  Receipt Date: 20090105
  Transmission Date: 20090719
  Serious: Yes (Other)
  Sender: FDA-Public Use
  Company Number: A0729496A

PATIENT
  Age: 41 Year
  Sex: Male
  Weight: 81.8 kg

DRUGS (2)
  1. MALARONE [Suspect]
     Indication: MALARIA PROPHYLAXIS
     Dosage: 350MG PER DAY
     Route: 048
     Dates: start: 20071101, end: 20080429
  2. ZOCOR [Suspect]
     Indication: BLOOD CHOLESTEROL INCREASED
     Dosage: 40MG PER DAY
     Route: 048
     Dates: start: 20071025, end: 20080104

REACTIONS (5)
  - ADVERSE EVENT [None]
  - DRUG INTERACTION [None]
  - HEPATITIS A ANTIBODY POSITIVE [None]
  - HEPATOTOXICITY [None]
  - TRANSAMINASES INCREASED [None]
